FAERS Safety Report 6331597-2 (Version None)
Quarter: 2009Q3

REPORT INFORMATION
  Report Type: 
  Country: None (occurrence: None)
  Receive Date: 20090827
  Receipt Date: 20090818
  Transmission Date: 20100115
  Serious: Yes (Hospitalization)
  Sender: FDA-Public Use
  Company Number: JP-BAXTER-2009BH012752

PATIENT
  Sex: Male

DRUGS (2)
  1. DIANEAL LOW CALCIUM W/ DEXTROSE 1.5% [Suspect]
     Indication: PERITONEAL DIALYSIS
     Route: 033
     Dates: start: 20020201, end: 20090101
  2. EXTRANEAL [Suspect]
     Indication: PERITONEAL DIALYSIS
     Route: 033
     Dates: start: 20020201, end: 20090101

REACTIONS (1)
  - CEREBRAL HAEMORRHAGE [None]
